FAERS Safety Report 8025759-6 (Version None)
Quarter: 2012Q1

REPORT INFORMATION
  Report Type: 
  Country: None (occurrence: None)
  Receive Date: 20120105
  Receipt Date: 20110806
  Transmission Date: 20120608
  Serious: No
  Sender: FDA-Public Use
  Company Number: US-ABBOTT-11P-163-0844753-00

PATIENT

DRUGS (6)
  1. SYNTHROID [Suspect]
     Dates: start: 20060101
  2. SYNTHROID [Suspect]
     Indication: HYPOTHYROIDISM
     Dates: end: 20060101
  3. SYNTHROID [Suspect]
     Dates: start: 20110601
  4. SYNTHROID [Suspect]
     Dates: start: 20110601
  5. PRISTIQ [Concomitant]
     Indication: PRODUCT USED FOR UNKNOWN INDICATION
  6. POTASSIUM CHLORIDE [Concomitant]
     Indication: PRODUCT USED FOR UNKNOWN INDICATION

REACTIONS (5)
  - BLOOD THYROID STIMULATING HORMONE ABNORMAL [None]
  - HAIR TEXTURE ABNORMAL [None]
  - ALOPECIA [None]
  - MEMORY IMPAIRMENT [None]
  - OEDEMA PERIPHERAL [None]
